FAERS Safety Report 24604220 (Version 8)
Quarter: 2025Q4

REPORT INFORMATION
  Report Type: Spontaneous
  Country: EU (occurrence: EU)
  Receive Date: 20241111
  Receipt Date: 20251020
  Transmission Date: 20260118
  Serious: Yes (Hospitalization, Other)
  Sender: NOVARTIS
  Company Number: EU-Orion Corporation ORION PHARMA-SOLO2021-0013

PATIENT
  Age: 30 Year
  Sex: Female

DRUGS (33)
  1. CYCLOSPORINE [Suspect]
     Active Substance: CYCLOSPORINE
     Indication: Pyoderma gangrenosum
     Dosage: 4 MG/KG, QD
     Route: 065
  2. CYCLOSPORINE [Suspect]
     Active Substance: CYCLOSPORINE
     Dosage: 3 MG/KG, QD
     Route: 065
  3. CYCLOSPORINE [Suspect]
     Active Substance: CYCLOSPORINE
     Dosage: UNK
     Route: 065
  4. METHYLPREDNISOLONE [Suspect]
     Active Substance: METHYLPREDNISOLONE
     Indication: Pyoderma gangrenosum
     Dosage: 12 MG, QD
     Route: 065
  5. METHYLPREDNISOLONE [Suspect]
     Active Substance: METHYLPREDNISOLONE
     Dosage: UNK
     Route: 065
  6. METHYLPREDNISOLONE [Suspect]
     Active Substance: METHYLPREDNISOLONE
     Dosage: 12 MG
     Route: 065
  7. METHYLPREDNISOLONE [Suspect]
     Active Substance: METHYLPREDNISOLONE
     Dosage: 12 MG
     Route: 065
  8. ACYCLOVIR [Suspect]
     Active Substance: ACYCLOVIR
     Indication: Pyoderma gangrenosum
     Dosage: UNK
     Route: 065
  9. ACYCLOVIR [Suspect]
     Active Substance: ACYCLOVIR
     Dosage: UNK
     Route: 065
  10. ETHAMSYLATE [Suspect]
     Active Substance: ETHAMSYLATE
     Indication: Pyoderma gangrenosum
     Dosage: UNK
     Route: 065
  11. ETHAMSYLATE [Suspect]
     Active Substance: ETHAMSYLATE
     Dosage: UNK
     Route: 065
  12. ETHAMSYLATE [Suspect]
     Active Substance: ETHAMSYLATE
     Dosage: UNK
     Route: 065
  13. ETHAMSYLATE [Suspect]
     Active Substance: ETHAMSYLATE
     Dosage: UNK
     Route: 065
  14. SULFAMETHOXAZOLE\TRIMETHOPRIM [Suspect]
     Active Substance: SULFAMETHOXAZOLE\TRIMETHOPRIM
     Indication: Pyoderma gangrenosum
     Dosage: UNK
     Route: 065
  15. SULFAMETHOXAZOLE\TRIMETHOPRIM [Suspect]
     Active Substance: SULFAMETHOXAZOLE\TRIMETHOPRIM
     Dosage: UNK
     Route: 065
  16. DEXAMETHASONE [Suspect]
     Active Substance: DEXAMETHASONE
     Indication: Pyoderma gangrenosum
     Dosage: 12 MG, QD
     Route: 042
  17. DEXAMETHASONE [Suspect]
     Active Substance: DEXAMETHASONE
     Indication: Pyoderma gangrenosum
     Dosage: UNK (DOSE WAS GRADUALLY REDUCED)
     Route: 042
  18. PANTOPRAZOLE [Suspect]
     Active Substance: PANTOPRAZOLE
     Indication: Pyoderma gangrenosum
     Dosage: 20 MG, QD
     Route: 065
  19. PANTOPRAZOLE [Suspect]
     Active Substance: PANTOPRAZOLE
     Indication: Pyoderma gangrenosum
     Dosage: UNK
     Route: 065
  20. CEFTRIAXONE [Suspect]
     Active Substance: CEFTRIAXONE
     Indication: Pyoderma gangrenosum
     Dosage: 2 G, QD
     Route: 065
  21. CEFTRIAXONE [Suspect]
     Active Substance: CEFTRIAXONE
     Indication: Pyoderma gangrenosum
     Dosage: UNK
     Route: 065
  22. NADROPARIN CALCIUM [Suspect]
     Active Substance: NADROPARIN CALCIUM
     Indication: Pyoderma gangrenosum
     Dosage: UNK (5700 IU/AXA)
     Route: 065
  23. NADROPARIN CALCIUM [Suspect]
     Active Substance: NADROPARIN CALCIUM
     Indication: Coagulopathy
     Dosage: UNK
     Route: 065
  24. NADROPARIN CALCIUM [Suspect]
     Active Substance: NADROPARIN CALCIUM
     Dosage: 5700 IU, QD
     Route: 065
  25. MUPIROCIN [Suspect]
     Active Substance: MUPIROCIN
     Indication: Pyoderma gangrenosum
     Dosage: UNK (TOPICAL)
     Route: 050
  26. MUPIROCIN [Suspect]
     Active Substance: MUPIROCIN
     Indication: Pyoderma gangrenosum
     Dosage: UNK
     Route: 065
  27. MUPIROCIN [Suspect]
     Active Substance: MUPIROCIN
     Dosage: UNK
     Route: 065
  28. SODIUM CHLORIDE [Suspect]
     Active Substance: SODIUM CHLORIDE
     Indication: Pyoderma gangrenosum
     Dosage: UNK (TOPICAL)
     Route: 065
  29. SODIUM CHLORIDE [Suspect]
     Active Substance: SODIUM CHLORIDE
     Indication: Pyoderma gangrenosum
     Dosage: UNK (TOPICAL)
     Route: 050
  30. SODIUM CHLORIDE [Suspect]
     Active Substance: SODIUM CHLORIDE
     Dosage: UNK
     Route: 065
  31. CLOBETASOL PROPIONATE [Suspect]
     Active Substance: CLOBETASOL PROPIONATE
     Indication: Pyoderma gangrenosum
     Dosage: UNK (TOPICAL )
     Route: 050
  32. CLOBETASOL PROPIONATE [Suspect]
     Active Substance: CLOBETASOL PROPIONATE
     Indication: Off label use
     Dosage: UNK
     Route: 065
  33. MESALAMINE [Concomitant]
     Active Substance: MESALAMINE
     Indication: Pyoderma gangrenosum
     Dosage: UNK
     Route: 065

REACTIONS (4)
  - Drug ineffective [Recovering/Resolving]
  - Colitis ulcerative [Unknown]
  - Diarrhoea [Unknown]
  - Off label use [Unknown]
